FAERS Safety Report 9030799 (Version 1)
Quarter: 2013Q1

REPORT INFORMATION
  Report Type: Spontaneous
  Country: US (occurrence: US)
  Receive Date: 20130123
  Receipt Date: 20130123
  Transmission Date: 20140127
  Serious: No
  Sender: FDA-Public Use
  Company Number: US-009507513-1301USA005598

PATIENT
  Age: 63 Year
  Sex: Male

DRUGS (4)
  1. RIBAVIRIN [Suspect]
     Indication: CHRONIC HEPATITIS C
  2. PEG-INTRON [Suspect]
     Indication: CHRONIC HEPATITIS C
     Dosage: UNK
  3. PREDNISOLONE [Concomitant]
     Dosage: 60 MG/DL
  4. AZATHIOPRINE [Concomitant]

REACTIONS (2)
  - Hypoglycaemia [Recovered/Resolved]
  - Anti-insulin antibody increased [Recovered/Resolved]
